FAERS Safety Report 16245421 (Version 3)
Quarter: 2019Q4

REPORT INFORMATION
  Report Type: Spontaneous
  Country: US (occurrence: US)
  Receive Date: 20190426
  Receipt Date: 20191105
  Transmission Date: 20200122
  Serious: Yes (Other)
  Sender: FDA-Public Use
  Company Number: US-ASTRAZENECA-2019SE09453

PATIENT
  Age: 55 Year
  Sex: Male

DRUGS (79)
  1. PRILOSEC [Suspect]
     Active Substance: OMEPRAZOLE MAGNESIUM
     Indication: GASTROOESOPHAGEAL REFLUX DISEASE
     Dosage: GENERIC
     Route: 065
     Dates: start: 2015
  2. BUPROPION. [Concomitant]
     Active Substance: BUPROPION
  3. AZITHROMYCIN ANHYDROUS. [Concomitant]
     Active Substance: AZITHROMYCIN ANHYDROUS
  4. TRAMADOL. [Concomitant]
     Active Substance: TRAMADOL
  5. FINASTERIDE. [Concomitant]
     Active Substance: FINASTERIDE
  6. AMOXICILLINE [Concomitant]
     Active Substance: AMOXICILLIN
  7. AZITHROMYCIN ANHYDROUS. [Concomitant]
     Active Substance: AZITHROMYCIN ANHYDROUS
  8. DIBUCAINE. [Concomitant]
     Active Substance: DIBUCAINE
  9. CYCLOBENZAPRINE. [Concomitant]
     Active Substance: CYCLOBENZAPRINE
  10. MELOXICAM. [Concomitant]
     Active Substance: MELOXICAM
  11. CLOTRIMAZOLE. [Concomitant]
     Active Substance: CLOTRIMAZOLE
  12. DOCUSATE [Concomitant]
     Active Substance: DOCUSATE
  13. PRILOSEC [Suspect]
     Active Substance: OMEPRAZOLE MAGNESIUM
     Indication: GASTROOESOPHAGEAL REFLUX DISEASE
     Route: 065
  14. LANSOPRAZOLE. [Suspect]
     Active Substance: LANSOPRAZOLE
     Indication: GASTROOESOPHAGEAL REFLUX DISEASE
     Dosage: GENERIC
     Route: 048
     Dates: start: 20151006
  15. BUSPIRON [Concomitant]
  16. MELOXICAM. [Concomitant]
     Active Substance: MELOXICAM
  17. PREDNISONE. [Concomitant]
     Active Substance: PREDNISONE
  18. OXYBUTYNIN. [Concomitant]
     Active Substance: OXYBUTYNIN CHLORIDE
  19. ACETAMINOPHEN. [Concomitant]
     Active Substance: ACETAMINOPHEN
  20. NYSTATIN. [Concomitant]
     Active Substance: NYSTATIN
  21. PRILOSEC [Suspect]
     Active Substance: OMEPRAZOLE MAGNESIUM
     Indication: GASTROOESOPHAGEAL REFLUX DISEASE
     Route: 048
     Dates: start: 2015
  22. LANSOPRAZOLE. [Suspect]
     Active Substance: LANSOPRAZOLE
     Indication: GASTROOESOPHAGEAL REFLUX DISEASE
     Route: 065
     Dates: start: 2015
  23. CODEINE [Concomitant]
     Active Substance: CODEINE
  24. METHOCARBAMOL. [Concomitant]
     Active Substance: METHOCARBAMOL
  25. SERTRALINE [Concomitant]
     Active Substance: SERTRALINE HYDROCHLORIDE
  26. RANITIDIN [Concomitant]
     Active Substance: RANITIDINE HYDROCHLORIDE
  27. TRAMADOL. [Concomitant]
     Active Substance: TRAMADOL
  28. TADALAFIL. [Concomitant]
     Active Substance: TADALAFIL
  29. CIALIS [Concomitant]
     Active Substance: TADALAFIL
  30. CARBOXYMETHYLCELLULOSE [Concomitant]
     Active Substance: CARBOXYMETHYLCELLULOSE
  31. CLOTRIMAZOLE. [Concomitant]
     Active Substance: CLOTRIMAZOLE
  32. METHYLPREDNISOLONE. [Concomitant]
     Active Substance: METHYLPREDNISOLONE
  33. SERTRALINE [Concomitant]
     Active Substance: SERTRALINE HYDROCHLORIDE
  34. TRAZODONE [Concomitant]
     Active Substance: TRAZODONE HYDROCHLORIDE
  35. CODEINE [Concomitant]
     Active Substance: CODEINE
  36. FINASTERIDE. [Concomitant]
     Active Substance: FINASTERIDE
  37. SERTRALINE [Concomitant]
     Active Substance: SERTRALINE HYDROCHLORIDE
  38. SIMVASTATIN. [Concomitant]
     Active Substance: SIMVASTATIN
  39. HYDROCODONE BITARTRATE AND ACETAMINOPHEN [Concomitant]
     Active Substance: ACETAMINOPHEN\HYDROCODONE BITARTRATE
  40. LANSOPRAZOLE. [Concomitant]
     Active Substance: LANSOPRAZOLE
  41. SULFAMETHOXAZOLE [Concomitant]
     Active Substance: SULFAMETHOXAZOLE
  42. GABAPENTIN. [Concomitant]
     Active Substance: GABAPENTIN
  43. PRILOSEC [Suspect]
     Active Substance: OMEPRAZOLE MAGNESIUM
     Indication: GASTROOESOPHAGEAL REFLUX DISEASE
     Route: 048
  44. PRILOSEC [Suspect]
     Active Substance: OMEPRAZOLE MAGNESIUM
     Indication: GASTROOESOPHAGEAL REFLUX DISEASE
     Dosage: GENERIC
     Route: 065
  45. TERBINAFINE. [Concomitant]
     Active Substance: TERBINAFINE
  46. DOXYCYCLINE. [Concomitant]
     Active Substance: DOXYCYCLINE
  47. METHYLPREDNISOLONE. [Concomitant]
     Active Substance: METHYLPREDNISOLONE
  48. TRAMADOL. [Concomitant]
     Active Substance: TRAMADOL
  49. ZANTAC [Concomitant]
     Active Substance: RANITIDINE HYDROCHLORIDE
  50. SERTRALINE [Concomitant]
     Active Substance: SERTRALINE HYDROCHLORIDE
  51. FLUTICASONE. [Concomitant]
     Active Substance: FLUTICASONE
  52. TADALAFIL. [Concomitant]
     Active Substance: TADALAFIL
  53. IBUPROFEN. [Concomitant]
     Active Substance: IBUPROFEN
  54. TADALAFIL. [Concomitant]
     Active Substance: TADALAFIL
  55. TAMSULOSIN [Concomitant]
     Active Substance: TAMSULOSIN
  56. MIRTAZAPINE. [Concomitant]
     Active Substance: MIRTAZAPINE
  57. DIAZEPAM. [Concomitant]
     Active Substance: DIAZEPAM
  58. CAMPHOR [Concomitant]
     Active Substance: CAMPHOR
  59. AMOXYCILLIN [Concomitant]
     Active Substance: AMOXICILLIN
  60. SERTRALINE [Concomitant]
     Active Substance: SERTRALINE HYDROCHLORIDE
  61. SIMVASTATIN. [Concomitant]
     Active Substance: SIMVASTATIN
  62. HYDROCODONE [Concomitant]
     Active Substance: HYDROCODONE
  63. NYSTATIN. [Concomitant]
     Active Substance: NYSTATIN
  64. RANITIDINE. [Concomitant]
     Active Substance: RANITIDINE
  65. PRILOSEC [Suspect]
     Active Substance: OMEPRAZOLE MAGNESIUM
     Indication: GASTROOESOPHAGEAL REFLUX DISEASE
     Route: 065
     Dates: start: 20151002
  66. AMOXICILLIN. [Concomitant]
     Active Substance: AMOXICILLIN
  67. MIRTAZAPINE. [Concomitant]
     Active Substance: MIRTAZAPINE
  68. SULFAMETHOXAZOLE [Concomitant]
     Active Substance: SULFAMETHOXAZOLE
  69. CIPROFLOXACIN. [Concomitant]
     Active Substance: CIPROFLOXACIN
  70. CYCLOBENZAPRINE. [Concomitant]
     Active Substance: CYCLOBENZAPRINE
  71. BUPROPION. [Concomitant]
     Active Substance: BUPROPION
  72. GABAPENTIN. [Concomitant]
     Active Substance: GABAPENTIN
  73. CETRIZINE [Concomitant]
     Active Substance: CETIRIZINE HYDROCHLORIDE
  74. NAPROXEN. [Concomitant]
     Active Substance: NAPROXEN
  75. IBUPROFEN. [Concomitant]
     Active Substance: IBUPROFEN
  76. TRAZODONE [Concomitant]
     Active Substance: TRAZODONE HYDROCHLORIDE
  77. GABAPENTIN. [Concomitant]
     Active Substance: GABAPENTIN
  78. METHOCARBAMOL. [Concomitant]
     Active Substance: METHOCARBAMOL
  79. HYDROCORTISONE. [Concomitant]
     Active Substance: HYDROCORTISONE

REACTIONS (9)
  - Constipation [Not Recovered/Not Resolved]
  - Abdominal pain [Not Recovered/Not Resolved]
  - Chronic kidney disease [Unknown]
  - Rebound acid hypersecretion [Unknown]
  - Haemorrhoids [Not Recovered/Not Resolved]
  - Persistent depressive disorder [Unknown]
  - Rectal haemorrhage [Not Recovered/Not Resolved]
  - Renal failure [Not Recovered/Not Resolved]
  - Renal injury [Unknown]

NARRATIVE: CASE EVENT DATE: 2012
